FAERS Safety Report 17198929 (Version 2)
Quarter: 2019Q4

REPORT INFORMATION
  Report Type: Report from Study
  Country: CA (occurrence: CA)
  Receive Date: 20191225
  Receipt Date: 20191226
  Transmission Date: 20200122
  Serious: Yes (Other)
  Sender: FDA-Public Use
  Company Number: NVSC2019CA077102

PATIENT
  Sex: Male

DRUGS (20)
  1. APO-METOPROLOL [Concomitant]
     Active Substance: METOPROLOL
     Indication: HEART RATE DECREASED
  2. APO-DIAZEPAM [Concomitant]
     Active Substance: DIAZEPAM
     Indication: MUSCLE SPASMS
     Dosage: 2 MG
     Route: 065
  3. APO-FUROSEMIDE [Concomitant]
     Active Substance: FUROSEMIDE
     Indication: JOINT SWELLING
     Dosage: UNK
     Route: 065
  4. KETOTIFEN FUMARATE. [Concomitant]
     Active Substance: KETOTIFEN FUMARATE
     Indication: BLEPHARITIS
     Dosage: UNK (AT LEAST EVERY 2 YEARS)
     Route: 065
  5. VOLTAREN [Concomitant]
     Active Substance: DICLOFENAC SODIUM
     Indication: PRODUCT USED FOR UNKNOWN INDICATION
     Route: 065
  6. RATIO-MELOXICAM [Concomitant]
     Indication: PERIPHERAL SWELLING
  7. IBUPROFEN. [Concomitant]
     Active Substance: IBUPROFEN
     Indication: PRODUCT USED FOR UNKNOWN INDICATION
     Dosage: UNK
     Route: 065
  8. APO-METOPROLOL [Concomitant]
     Active Substance: METOPROLOL
     Indication: HYPERTENSION
     Dosage: 5 MG
     Route: 065
  9. ZADITOR [Concomitant]
     Active Substance: KETOTIFEN FUMARATE
     Indication: BLEPHARITIS
     Dosage: 0.25 %
     Route: 065
  10. HIDROCORTIZON [Concomitant]
     Indication: SKIN EXFOLIATION
     Dosage: 1 %
     Route: 065
  11. RANITIDINE. [Concomitant]
     Active Substance: RANITIDINE
     Indication: PRODUCT USED FOR UNKNOWN INDICATION
     Dosage: UNK
     Route: 065
  12. PREDNISONE. [Concomitant]
     Active Substance: PREDNISONE
     Indication: PRODUCT USED FOR UNKNOWN INDICATION
     Route: 065
  13. MELOXICAM. [Concomitant]
     Active Substance: MELOXICAM
     Indication: PRODUCT USED FOR UNKNOWN INDICATION
     Dosage: UNK
     Route: 065
  14. RATIO-MELOXICAM [Concomitant]
     Indication: PAIN IN EXTREMITY
     Route: 065
  15. ZADITOR [Concomitant]
     Active Substance: KETOTIFEN FUMARATE
     Indication: PRODUCT USED FOR UNKNOWN INDICATION
     Dosage: UNK (TAKES EVERY 2 YEARS ONLY)
     Route: 065
  16. MELSON [Concomitant]
     Indication: PAIN
     Dosage: UNK
     Route: 065
  17. HIDROCORTIZON [Concomitant]
     Indication: RASH
  18. COSENTYX [Suspect]
     Active Substance: SECUKINUMAB
     Indication: PSORIATIC ARTHROPATHY
     Dosage: 150 MG, QW (SENSOREADY PEN)
     Route: 058
     Dates: start: 20191207
  19. STATEX [Concomitant]
     Indication: BREAKTHROUGH PAIN
     Dosage: 5 MG (1 TABLET) EVERY 4 HOURS
     Route: 065
  20. GEN-SIMVASTATIN [Concomitant]
     Indication: CARDIAC DISORDER
     Dosage: 20 MG
     Route: 065

REACTIONS (5)
  - Fall [Unknown]
  - Enthesopathy [Unknown]
  - Exostosis [Unknown]
  - Ankle fracture [Unknown]
  - Psoriatic arthropathy [Unknown]
